FAERS Safety Report 20347622 (Version 1)
Quarter: 2022Q1

REPORT INFORMATION
  Report Type: Report from Study
  Country: US (occurrence: US)
  Receive Date: 20220118
  Receipt Date: 20220118
  Transmission Date: 20220424
  Serious: Yes (Hospitalization, Other)
  Sender: FDA-Public Use
  Company Number: US-TAKEDA-US201938382

PATIENT
  Age: 66 Year
  Sex: Male

DRUGS (8)
  1. TEDUGLUTIDE [Suspect]
     Active Substance: TEDUGLUTIDE
     Indication: Short-bowel syndrome
     Dosage: 3.1 MILLIGRAM, 1X/DAY:QD
     Route: 058
     Dates: start: 20190816
  2. TEDUGLUTIDE [Suspect]
     Active Substance: TEDUGLUTIDE
     Indication: Short-bowel syndrome
     Dosage: 3.1 MILLIGRAM, 1X/DAY:QD
     Route: 058
     Dates: start: 20190816
  3. TEDUGLUTIDE [Suspect]
     Active Substance: TEDUGLUTIDE
     Indication: Short-bowel syndrome
     Dosage: 3.1 MILLIGRAM, 1X/DAY:QD
     Route: 058
     Dates: start: 20190816
  4. TEDUGLUTIDE [Suspect]
     Active Substance: TEDUGLUTIDE
     Indication: Short-bowel syndrome
     Dosage: 3.1 MILLIGRAM, 1X/DAY:QD
     Route: 058
     Dates: start: 20190816
  5. TEDUGLUTIDE [Suspect]
     Active Substance: TEDUGLUTIDE
     Dosage: 3.4 MILLIGRAM
     Route: 058
     Dates: start: 202110
  6. TEDUGLUTIDE [Suspect]
     Active Substance: TEDUGLUTIDE
     Dosage: 3.4 MILLIGRAM
     Route: 058
     Dates: start: 202110
  7. TEDUGLUTIDE [Suspect]
     Active Substance: TEDUGLUTIDE
     Dosage: 3.4 MILLIGRAM
     Route: 058
     Dates: start: 202110
  8. TEDUGLUTIDE [Suspect]
     Active Substance: TEDUGLUTIDE
     Dosage: 3.4 MILLIGRAM
     Route: 058
     Dates: start: 202110

REACTIONS (2)
  - Pneumonia [Unknown]
  - COVID-19 [Unknown]

NARRATIVE: CASE EVENT DATE: 20191011
